FAERS Safety Report 19058039 (Version 1)
Quarter: 2021Q1

REPORT INFORMATION
  Report Type: Report from Study
  Country: US (occurrence: US)
  Receive Date: 20210324
  Receipt Date: 20210324
  Transmission Date: 20210420
  Serious: Yes (Other)
  Sender: FDA-Public Use
  Company Number: US-EXELIXIS-XL18421038723

PATIENT

DRUGS (2)
  1. CARFILZOMIB [Suspect]
     Active Substance: CARFILZOMIB
     Indication: PLASMA CELL MYELOMA
     Dosage: UNK
  2. XL184 [Suspect]
     Active Substance: CABOZANTINIB
     Indication: PLASMA CELL MYELOMA
     Dosage: UNK

REACTIONS (1)
  - Sepsis [Unknown]
